FAERS Safety Report 5755591-5 (Version None)
Quarter: 2008Q2

REPORT INFORMATION
  Report Type: 
  Country: None (occurrence: None)
  Receive Date: 20080602
  Receipt Date: 20080523
  Transmission Date: 20081010
  Serious: Yes (Hospitalization, Other)
  Sender: FDA-Public Use
  Company Number: US-MERCK-0706USA02105

PATIENT
  Age: 56 Year
  Sex: Female

DRUGS (3)
  1. FOSAMAX [Suspect]
     Indication: OSTEOPOROSIS
     Route: 048
     Dates: start: 20020901, end: 20030501
  2. FOSAMAX [Suspect]
     Route: 048
     Dates: start: 20031008, end: 20050101
  3. ZESTRIL [Concomitant]
     Indication: HYPERTENSION
     Route: 065
     Dates: start: 19920101

REACTIONS (18)
  - ANAEMIA [None]
  - ATRIOVENTRICULAR BLOCK FIRST DEGREE [None]
  - BACK DISORDER [None]
  - BUNDLE BRANCH BLOCK RIGHT [None]
  - FALL [None]
  - FRACTURED SACRUM [None]
  - MITRAL VALVE INCOMPETENCE [None]
  - MITRAL VALVE PROLAPSE [None]
  - NERVOUS SYSTEM DISORDER [None]
  - OEDEMA MOUTH [None]
  - OSTEONECROSIS [None]
  - PAIN [None]
  - PAIN IN JAW [None]
  - PARATHYROID DISORDER [None]
  - SPONDYLOLISTHESIS [None]
  - SYNOVIAL CYST [None]
  - TOOTH IMPACTED [None]
  - TOOTH INFECTION [None]
